FAERS Safety Report 9642179 (Version 6)
Quarter: 2014Q1

REPORT INFORMATION
  Report Type: Report from Study
  Country: KR (occurrence: KR)
  Receive Date: 20131023
  Receipt Date: 20140317
  Transmission Date: 20141002
  Serious: Yes (Hospitalization)
  Sender: FDA-Public Use
  Company Number: KR-ROCHE-1289280

PATIENT
  Age: 71 Year
  Sex: Male
  Weight: 59 kg

DRUGS (22)
  1. TRASTUZUMAB EMTANSINE [Suspect]
     Indication: HER-2 POSITIVE GASTRIC CANCER
     Dosage: THE MOST RECENT DOSE PRIOR TO THE EVENT WAS ON 23/SEP/2013.
     Route: 042
     Dates: start: 20130628
  2. TRASTUZUMAB EMTANSINE [Suspect]
     Dosage: DOSE REDUCED (DETAILS NOT REPORTED)
     Route: 042
  3. TANTUM ORAL RINSE [Concomitant]
     Indication: MUCOSAL INFLAMMATION
     Route: 065
     Dates: start: 20130604
  4. NORZYME [Concomitant]
     Indication: DYSPEPSIA
     Route: 065
     Dates: start: 20130625
  5. NORZYME [Concomitant]
     Route: 065
     Dates: start: 20130925
  6. DEXAMETHASONE [Concomitant]
     Route: 065
     Dates: start: 20130628
  7. ULCERMIN (SOUTH KOREA) [Concomitant]
     Indication: ANASTOMOTIC ULCER
     Route: 065
     Dates: start: 20130605
  8. PHENIRAMINE [Concomitant]
     Route: 065
     Dates: start: 20130628
  9. APETROL (SOUTH KOREA) [Concomitant]
     Indication: HYPOPHAGIA
     Route: 048
     Dates: start: 20130629
  10. BISOLVON [Concomitant]
     Indication: PRODUCTIVE COUGH
     Route: 065
     Dates: start: 20130830
  11. COFREL [Concomitant]
     Indication: PRODUCTIVE COUGH
     Route: 065
     Dates: start: 20130830
  12. HARNAL D [Concomitant]
     Indication: BENIGN PROSTATIC HYPERPLASIA
     Route: 065
     Dates: start: 20130830, end: 20130928
  13. HARNAL D [Concomitant]
     Route: 065
     Dates: start: 20131014, end: 20131017
  14. MYTONIN (SOUTH KOREA) [Concomitant]
     Indication: BENIGN PROSTATIC HYPERPLASIA
     Route: 065
     Dates: start: 20130830, end: 20130928
  15. LIPISION [Concomitant]
     Indication: FATIGUE
     Route: 065
     Dates: start: 20130923, end: 20130923
  16. MAGNESIUM OXIDE [Concomitant]
     Indication: CONSTIPATION
     Route: 065
     Dates: start: 20131015
  17. FESTAL II [Concomitant]
     Indication: DYSPEPSIA
     Route: 065
     Dates: start: 20131015, end: 20131018
  18. GANATON [Concomitant]
     Indication: DYSPEPSIA
     Route: 065
     Dates: start: 20131015, end: 20131018
  19. DUPHALAC-EASY [Concomitant]
     Indication: CONSTIPATION
     Route: 065
     Dates: start: 20131015, end: 20131018
  20. PROSCAR [Concomitant]
     Indication: BENIGN PROSTATIC HYPERPLASIA
     Route: 065
     Dates: start: 20130830, end: 20130928
  21. PROSCAR [Concomitant]
     Route: 065
     Dates: start: 20131014, end: 20131017
  22. GLYCERINE [Concomitant]
     Indication: CONSTIPATION
     Route: 065
     Dates: start: 20131016, end: 20131016

REACTIONS (1)
  - Hypophagia [Recovered/Resolved]
